FAERS Safety Report 10068421 (Version 2)
Quarter: 2014Q2

REPORT INFORMATION
  Report Type: Spontaneous
  Country: US (occurrence: US)
  Receive Date: 20140409
  Receipt Date: 20140522
  Transmission Date: 20141212
  Serious: No
  Sender: FDA-Public Use
  Company Number: US-B.I. PHARMACEUTICALS,INC./RIDGEFIELD-2014-BI-13915BP

PATIENT
  Age: 72 Year
  Sex: Female

DRUGS (9)
  1. PRADAXA [Suspect]
     Indication: ATRIAL FIBRILLATION
     Dosage: 300 MG
     Route: 048
     Dates: start: 2012
  2. LASIX [Concomitant]
     Dosage: 150 MG
     Route: 065
  3. POTASSIUM CHLORIDE [Concomitant]
     Dosage: 20 MEQ
     Route: 065
  4. ADVAIR DISKUS [Concomitant]
     Dosage: DOSE PER APPLICATION: 500-50 DAILY DOSE: 2X 500-50
     Route: 065
  5. SPIRIVA [Concomitant]
     Dosage: 18 MCG
     Route: 065
  6. XOPENEX [Concomitant]
     Dosage: DOSE PER APPLICATION AND DAILY DOSE: 1.25MG/3ML
     Route: 065
  7. VERAPAMIL HCL ER [Concomitant]
     Dosage: 480 MG
     Route: 048
  8. VERAPAMIL HCL ER [Concomitant]
     Dosage: 480 MG
     Route: 065
  9. DIGOXIN [Concomitant]
     Dosage: 0.25 MG
     Route: 048

REACTIONS (4)
  - Ocular hyperaemia [Not Recovered/Not Resolved]
  - Ocular hyperaemia [Not Recovered/Not Resolved]
  - Eye inflammation [Not Recovered/Not Resolved]
  - Visual acuity reduced [Not Recovered/Not Resolved]
